FAERS Safety Report 10410279 (Version 1)
Quarter: 2014Q2

REPORT INFORMATION
  Report Type: Spontaneous
  Country: US (occurrence: None)
  Receive Date: 20140604
  Receipt Date: 20140604
  Transmission Date: 20141212
  Serious: No
  Sender: FDA-Public Use
  Company Number: 163-POMAL-14042247

PATIENT
  Age: 75 Year
  Sex: Female

DRUGS (8)
  1. POMALYST (POMALIDOMIDE) (4 MILLIGRAM, CAPSULES) [Suspect]
     Indication: PLASMA CELL MYELOMA
     Dosage: 4 MG, 21 IN 21 D
     Route: 048
     Dates: start: 20130429
  2. ADVIL (IBUPROFEN) [Concomitant]
  3. GABAPENTIN [Concomitant]
  4. BENADRYL (DIPHENHYDRAMINE) [Concomitant]
  5. COMBIGAN [Concomitant]
  6. LUMIGAN (BIMATOPROST) [Concomitant]
  7. BABY ASPIRIN (ACETYLSALICYLIC ACID) [Concomitant]
  8. LISINOPRIL [Concomitant]

REACTIONS (1)
  - Gingivitis [None]
